FAERS Safety Report 16036329 (Version 1)
Quarter: 2019Q1

REPORT INFORMATION
  Report Type: Spontaneous
  Country: US (occurrence: US)
  Receive Date: 20190305
  Receipt Date: 20190305
  Transmission Date: 20190418
  Serious: No
  Sender: FDA-Public Use
  Company Number: US-ALLERGAN-1838515US

PATIENT
  Sex: Female

DRUGS (1)
  1. ESTRACE [Suspect]
     Active Substance: ESTRADIOL
     Indication: BLADDER PERFORATION
     Dosage: UNK (3 TIMES WEEKLY)
     Route: 061
     Dates: start: 201806

REACTIONS (3)
  - Off label use [Unknown]
  - Urethral pain [Recovering/Resolving]
  - Genital burning sensation [Recovering/Resolving]

NARRATIVE: CASE EVENT DATE: 201807
